FAERS Safety Report 18062821 (Version 1)
Quarter: 2020Q3

REPORT INFORMATION
  Report Type: Spontaneous
  Country: US (occurrence: US)
  Receive Date: 20200723
  Receipt Date: 20200723
  Transmission Date: 20201103
  Serious: No
  Sender: FDA-Public Use
  Company Number: US-IGSA-SR10009222

PATIENT
  Age: 59 Year
  Sex: Male

DRUGS (3)
  1. GAMUNEX?C [Suspect]
     Active Substance: HUMAN IMMUNOGLOBULIN G
     Indication: CHRONIC INFLAMMATORY DEMYELINATING POLYRADICULONEUROPATHY
     Dosage: 10 G, Q.4WK.
     Route: 042
     Dates: start: 20190913
  2. GAMUNEX?C [Suspect]
     Active Substance: HUMAN IMMUNOGLOBULIN G
     Dosage: 100 G, Q.4WK.
     Route: 042
     Dates: start: 20190913
  3. GAMUNEX?C [Suspect]
     Active Substance: HUMAN IMMUNOGLOBULIN G
     Dosage: 5 UNK, Q.4WK.
     Route: 042
     Dates: start: 20190913

REACTIONS (6)
  - Influenza [Unknown]
  - Hyperhidrosis [Unknown]
  - Decreased appetite [Unknown]
  - Fatigue [Unknown]
  - Hepatic enzyme increased [Unknown]
  - Jaundice [Unknown]

NARRATIVE: CASE EVENT DATE: 20190913
